FAERS Safety Report 25863198 (Version 1)
Quarter: 2025Q3

REPORT INFORMATION
  Report Type: Spontaneous
  Country: IN (occurrence: IN)
  Receive Date: 20250930
  Receipt Date: 20250930
  Transmission Date: 20251020
  Serious: Yes (Other)
  Sender: MSN LABORATORIES PRIVATE LIMITED
  Company Number: IN-MSNLABS-2025MSNLIT02847

PATIENT

DRUGS (2)
  1. BARICITINIB [Suspect]
     Active Substance: BARICITINIB
     Indication: Drug therapy
     Route: 065
  2. BARICITINIB [Suspect]
     Active Substance: BARICITINIB
     Route: 065

REACTIONS (3)
  - Cytomegalovirus viraemia [Unknown]
  - Hepatitis [Unknown]
  - Lymphopenia [Unknown]
